FAERS Safety Report 25547723 (Version 1)
Quarter: 2025Q3

REPORT INFORMATION
  Report Type: Spontaneous
  Country: US (occurrence: US)
  Receive Date: 20250714
  Receipt Date: 20250714
  Transmission Date: 20251021
  Serious: No
  Sender: ROCHE
  Company Number: US-ROCHE-10000327997

PATIENT

DRUGS (2)
  1. AVASTIN [Suspect]
     Active Substance: BEVACIZUMAB
     Indication: Platelet count decreased
     Route: 065
  2. BYOOVIZ [Concomitant]
     Active Substance: RANIBIZUMAB-NUNA

REACTIONS (2)
  - Uveitis [Unknown]
  - Off label use [Unknown]
